FAERS Safety Report 6682396-3 (Version None)
Quarter: 2010Q2

REPORT INFORMATION
  Report Type: 
  Country: None (occurrence: None)
  Receive Date: 20100415
  Receipt Date: 20100402
  Transmission Date: 20101027
  Serious: Yes (Hospitalization)
  Sender: FDA-Public Use
  Company Number: GB-RANBAXY-2010RR-33093

PATIENT
  Age: 70 Year
  Sex: Male

DRUGS (6)
  1. SIMVASTATIN [Suspect]
     Indication: HYPERCHOLESTEROLAEMIA
     Dosage: 40 MG, UNK
     Route: 048
  2. CEFUROXIME [Suspect]
     Indication: PSOAS ABSCESS
     Dosage: UNK
     Route: 042
  3. FLOXACILLIN SODIUM [Suspect]
     Indication: PSOAS ABSCESS
     Dosage: UNK
     Route: 042
  4. METRONIDAZOLE [Suspect]
     Indication: PSOAS ABSCESS
     Dosage: UNK
     Route: 042
  5. FLOXACILLIN SODIUM [Suspect]
     Dosage: 500 MG, QID
     Route: 048
  6. ERYTHROMYCIN [Suspect]
     Indication: PSOAS ABSCESS
     Dosage: 250 MG, QID

REACTIONS (3)
  - DRUG INTERACTION [None]
  - MUSCULAR WEAKNESS [None]
  - RHABDOMYOLYSIS [None]
